FAERS Safety Report 5494144-3 (Version None)
Quarter: 2007Q4

REPORT INFORMATION
  Report Type: 
  Country: None (occurrence: None)
  Receive Date: 20071022
  Receipt Date: 20071002
  Transmission Date: 20080405
  Serious: Yes (Hospitalization)
  Sender: FDA-Public Use
  Company Number: D-07-0070

PATIENT
  Age: 55 Year
  Sex: Female

DRUGS (5)
  1. JANTOVEN [Suspect]
     Indication: PROTEIN C DEFICIENCY
     Dosage: 5 MG ALTERNATING WITH 7.5 MG, QD, PO
     Route: 048
     Dates: end: 20070801
  2. WARFARIN SODIUM [Suspect]
     Indication: PROTEIN C DEFICIENCY
     Dosage: PO
     Route: 048
     Dates: start: 19940101
  3. MULTI-VITAMIN [Concomitant]
  4. ASCORBIC ACID [Concomitant]
  5. BIOTIN [Concomitant]

REACTIONS (4)
  - DEEP VEIN THROMBOSIS [None]
  - INTERNATIONAL NORMALISED RATIO DECREASED [None]
  - LABORATORY TEST INTERFERENCE [None]
  - VENOUS THROMBOSIS LIMB [None]
